FAERS Safety Report 22006886 (Version 1)
Quarter: 2023Q1

REPORT INFORMATION
  Report Type: Spontaneous
  Country: US (occurrence: None)
  Receive Date: 20230216
  Receipt Date: 20230216
  Transmission Date: 20230418
  Serious: Yes (Other)
  Sender: FDA-Public Use
  Company Number: None

PATIENT
  Age: 59 Year
  Sex: Male

DRUGS (18)
  1. OPSUMIT [Suspect]
     Active Substance: MACITENTAN
     Indication: Pulmonary arterial hypertension
     Dosage: FREQUENCY : DAILY;?
     Route: 048
     Dates: start: 20151113
  2. OPSUMIT [Suspect]
     Active Substance: MACITENTAN
     Indication: Heritable pulmonary arterial hypertension
  3. TADALAFIL [Suspect]
     Active Substance: TADALAFIL
  4. SELEXIPAG [Suspect]
     Active Substance: SELEXIPAG
  5. TORSEMIDE [Concomitant]
     Active Substance: TORSEMIDE
  6. ROSUVASTATIN [Concomitant]
     Active Substance: ROSUVASTATIN
  7. DIGOXIN [Concomitant]
     Active Substance: DIGOXIN
  8. DULOXETINE [Concomitant]
     Active Substance: DULOXETINE
  9. WIXELA INHUB [Concomitant]
     Active Substance: FLUTICASONE PROPIONATE\SALMETEROL XINAFOATE
  10. docusat sodium [Concomitant]
  11. PANTOPRAZOLE [Concomitant]
     Active Substance: PANTOPRAZOLE
  12. BUPROPION [Concomitant]
     Active Substance: BUPROPION
  13. ASPIRIN [Concomitant]
     Active Substance: ASPIRIN
  14. SPIRONOLACTONE [Concomitant]
     Active Substance: SPIRONOLACTONE
  15. ALBUTEROL SULFATE [Concomitant]
     Active Substance: ALBUTEROL SULFATE
  16. MELATONIN [Concomitant]
  17. TYLENOL [Concomitant]
     Active Substance: ACETAMINOPHEN
  18. VITAMINS [Concomitant]
     Active Substance: VITAMINS

REACTIONS (3)
  - Refusal of treatment by patient [None]
  - Epistaxis [None]
  - Bronchitis [None]

NARRATIVE: CASE EVENT DATE: 20230124
